FAERS Safety Report 25758097 (Version 1)
Quarter: 2025Q3

REPORT INFORMATION
  Report Type: Spontaneous
  Country: US (occurrence: US)
  Receive Date: 20250903
  Receipt Date: 20250903
  Transmission Date: 20251020
  Serious: Yes (Other)
  Sender: AMGEN
  Company Number: US-AMGEN-USASP2025170413

PATIENT

DRUGS (1)
  1. PREDNISONE [Suspect]
     Active Substance: PREDNISONE
     Indication: Iridocyclitis
     Route: 048

REACTIONS (4)
  - Cataract [Unknown]
  - Uveitis [Unknown]
  - Ocular hypertension [Unknown]
  - Iris adhesions [Unknown]
